FAERS Safety Report 5839852-7 (Version None)
Quarter: 2008Q3

REPORT INFORMATION
  Report Type: 
  Country: None (occurrence: None)
  Receive Date: 20080807
  Receipt Date: 20080807
  Transmission Date: 20090109
  Serious: Yes (Disabling)
  Sender: FDA-Public Use
  Company Number: None

PATIENT
  Sex: Female
  Weight: 81.6475 kg

DRUGS (2)
  1. SEPTRA DS [Suspect]
     Indication: BACTERIAL INFECTION
     Dosage: 1 TWICE DAILY
     Dates: start: 20080303
  2. SULFAMETHOXAZOLE AND TRIMETHOPRIM [Suspect]

REACTIONS (2)
  - GAIT DISTURBANCE [None]
  - MOVEMENT DISORDER [None]
